FAERS Safety Report 18937694 (Version 1)
Quarter: 2021Q1

REPORT INFORMATION
  Report Type: Spontaneous
  Country: IE (occurrence: IE)
  Receive Date: 20210224
  Receipt Date: 20210224
  Transmission Date: 20210420
  Serious: Yes (Other)
  Sender: FDA-Public Use
  Company Number: IE-GUERBET-IE-20210003

PATIENT
  Age: 71 Year
  Sex: Female
  Weight: 77 kg

DRUGS (2)
  1. OPTIRAY 300 [Suspect]
     Active Substance: IOVERSOL
     Indication: COMPUTERISED TOMOGRAM THORAX
     Route: 042
     Dates: start: 20210209, end: 20210209
  2. OPTIRAY 300 [Suspect]
     Active Substance: IOVERSOL
     Indication: COMPUTERISED TOMOGRAM ABDOMEN

REACTIONS (6)
  - Loss of consciousness [Unknown]
  - Asthenia [Unknown]
  - Vomiting [Unknown]
  - Syncope [Unknown]
  - Malaise [Unknown]
  - Dizziness [Unknown]

NARRATIVE: CASE EVENT DATE: 20210209
